FAERS Safety Report 23342247 (Version 1)
Quarter: 2023Q4

REPORT INFORMATION
  Report Type: Spontaneous
  Country: JP (occurrence: JP)
  Receive Date: 20231227
  Receipt Date: 20231227
  Transmission Date: 20240109
  Serious: Yes (Other)
  Sender: FDA-Public Use
  Company Number: JP-ELI_LILLY_AND_COMPANY-JP202312011347AA

PATIENT
  Age: 30 Year
  Sex: Male

DRUGS (2)
  1. STRATTERA [Suspect]
     Active Substance: ATOMOXETINE HYDROCHLORIDE
     Indication: Product used for unknown indication
     Route: 048
  2. HANGEKOBOKUTO [MAGNOLIA SPP. BARK;PERILLA FRU [Concomitant]
     Route: 048

REACTIONS (2)
  - Serotonin syndrome [Recovering/Resolving]
  - Overdose [Unknown]
